FAERS Safety Report 17533931 (Version 1)
Quarter: 2020Q1

REPORT INFORMATION
  Report Type: Report from Study
  Country: CA (occurrence: CA)
  Receive Date: 20200312
  Receipt Date: 20200312
  Transmission Date: 20200409
  Serious: Yes (Other)
  Sender: FDA-Public Use
  Company Number: CA-SA-2019SA180007

PATIENT
  Age: 50 Year
  Sex: Female

DRUGS (6)
  1. RANITIDINE. [Concomitant]
     Active Substance: RANITIDINE
     Indication: PREMEDICATION
     Dosage: 150 MG
     Route: 048
     Dates: start: 20190626, end: 20190628
  2. METHYLPREDNISOLONE. [Concomitant]
     Active Substance: METHYLPREDNISOLONE
     Indication: PREMEDICATION
     Dosage: 1000 MG
     Route: 042
     Dates: start: 20190626, end: 20190628
  3. ALEMTUZUMAB [Suspect]
     Active Substance: ALEMTUZUMAB
     Indication: RELAPSING-REMITTING MULTIPLE SCLEROSIS
     Dosage: 12 MG, QD
     Route: 041
     Dates: start: 20190626, end: 20190628
  4. ACYCLOVIR [ACICLOVIR] [Concomitant]
     Active Substance: ACYCLOVIR
     Indication: PREMEDICATION
     Dosage: 200 MG
     Route: 048
     Dates: start: 20190626, end: 20190628
  5. TYLENOL [Concomitant]
     Active Substance: ACETAMINOPHEN
     Indication: PREMEDICATION
     Dosage: 975 MG
     Route: 048
     Dates: start: 20190626, end: 20190628
  6. REACTINE [CETIRIZINE HYDROCHLORIDE] [Concomitant]
     Active Substance: CETIRIZINE HYDROCHLORIDE
     Indication: PREMEDICATION
     Dosage: 10 MG
     Route: 048
     Dates: start: 20190626, end: 20190628

REACTIONS (15)
  - Multiple sclerosis [Recovered/Resolved]
  - Haemoglobin urine present [Unknown]
  - Infusion site pruritus [Recovered/Resolved]
  - Infusion site erythema [Recovered/Resolved]
  - Cytokine release syndrome [Unknown]
  - Mean cell haemoglobin decreased [Unknown]
  - Urinary tract infection [Not Recovered/Not Resolved]
  - Urine abnormality [Unknown]
  - Feeling abnormal [Recovered/Resolved]
  - Mean cell volume decreased [Unknown]
  - White blood cells urine positive [Unknown]
  - Headache [Recovered/Resolved]
  - Lymphocyte count decreased [Unknown]
  - Red blood cell count increased [Unknown]
  - Oropharyngeal pain [Not Recovered/Not Resolved]

NARRATIVE: CASE EVENT DATE: 2019
